FAERS Safety Report 13879072 (Version 2)
Quarter: 2017Q4

REPORT INFORMATION
  Report Type: Report from Study
  Country: TR (occurrence: TR)
  Receive Date: 20170817
  Receipt Date: 20171019
  Transmission Date: 20180320
  Serious: Yes (Death, Hospitalization)
  Sender: FDA-Public Use
  Company Number: TR-ACTELION-A-NJ2017-158218

PATIENT
  Age: 32 Year
  Sex: Female

DRUGS (5)
  1. VENTAVIS [Suspect]
     Active Substance: ILOPROST
     Dosage: UNK, 6ID
     Route: 055
     Dates: start: 20170421
  2. BELOC [Concomitant]
     Active Substance: METOPROLOL TARTRATE
  3. VENTAVIS [Suspect]
     Active Substance: ILOPROST
     Indication: PULMONARY ARTERIAL HYPERTENSION
     Dosage: UNK, Q4HR
     Route: 055
     Dates: start: 20170421
  4. TRACLEER [Concomitant]
     Active Substance: BOSENTAN
     Indication: PULMONARY ARTERIAL HYPERTENSION
  5. SILDENAFIL. [Concomitant]
     Active Substance: SILDENAFIL

REACTIONS (4)
  - Death [Fatal]
  - Nausea [Not Recovered/Not Resolved]
  - Haematemesis [Not Recovered/Not Resolved]
  - Cough [Not Recovered/Not Resolved]

NARRATIVE: CASE EVENT DATE: 20170810
